FAERS Safety Report 9759743 (Version 1)
Quarter: 2013Q4

REPORT INFORMATION
  Report Type: Spontaneous
  Country: US (occurrence: US)
  Receive Date: 20131216
  Receipt Date: 20131216
  Transmission Date: 20140711
  Serious: No
  Sender: FDA-Public Use
  Company Number: US-GILEAD-2010-0029100

PATIENT
  Age: 67 Year
  Sex: Female
  Weight: 54.5 kg

DRUGS (15)
  1. LETAIRIS [Suspect]
     Indication: PULMONARY ARTERIAL HYPERTENSION
     Route: 048
     Dates: start: 20100420, end: 20100430
  2. LASIX [Concomitant]
  3. ANTIVERT [Concomitant]
  4. PREDNISONE [Concomitant]
  5. SYNTHROID [Concomitant]
  6. BISCODYL [Concomitant]
  7. PRILOSEC [Concomitant]
  8. KLOR-CON [Concomitant]
  9. GRAPE SEED [Concomitant]
  10. FISH OIL [Concomitant]
  11. ZETIA [Concomitant]
  12. PROAIR [Concomitant]
  13. LUTEIN PLUS [Concomitant]
  14. FLOVENT [Concomitant]
  15. CITRACAL [Concomitant]

REACTIONS (2)
  - Hyperhidrosis [Recovered/Resolved]
  - Palpitations [Recovered/Resolved]
